FAERS Safety Report 6249821-3 (Version None)
Quarter: 2009Q2

REPORT INFORMATION
  Report Type: 
  Country: None (occurrence: None)
  Receive Date: 20090629
  Receipt Date: 20090617
  Transmission Date: 20091009
  Serious: Yes (Hospitalization)
  Sender: FDA-Public Use
  Company Number: PHHY2009GB22782

PATIENT
  Sex: Male

DRUGS (1)
  1. CLOZARIL [Suspect]
     Indication: SCHIZOPHRENIA
     Dosage: 175 MG DAILY
     Route: 048
     Dates: start: 20081023

REACTIONS (3)
  - DELUSION [None]
  - MENTAL DISORDER [None]
  - PSYCHOTIC DISORDER [None]
